FAERS Safety Report 9065334 (Version 1)
Quarter: 2013Q1

REPORT INFORMATION
  Report Type: Spontaneous
  Country: US (occurrence: US)
  Receive Date: 20130131
  Receipt Date: 20130131
  Transmission Date: 20140127
  Serious: No
  Sender: FDA-Public Use
  Company Number: US-ABBOTT-12P-163-1021536-00

PATIENT
  Sex: Female
  Weight: 111.68 kg

DRUGS (1)
  1. HUMIRA [Suspect]
     Indication: PSORIASIS
     Dates: start: 20120708, end: 20120830

REACTIONS (2)
  - Dermatitis psoriasiform [Not Recovered/Not Resolved]
  - Psoriasis [Not Recovered/Not Resolved]
